FAERS Safety Report 16835047 (Version 2)
Quarter: 2020Q1

REPORT INFORMATION
  Report Type: Spontaneous
  Country: US (occurrence: US)
  Receive Date: 20190920
  Receipt Date: 20200306
  Transmission Date: 20200409
  Serious: No
  Sender: FDA-Public Use
  Company Number: US-SA-2019SA262211

PATIENT
  Age: 34 Year
  Sex: Female

DRUGS (2)
  1. CEREZYME [Suspect]
     Active Substance: IMIGLUCERASE
     Indication: GAUCHER^S DISEASE
     Dosage: 3600 U, QOW
     Route: 041
     Dates: start: 20121004
  2. CEREZYME [Suspect]
     Active Substance: IMIGLUCERASE
     Dosage: 3600 U, QOW
     Route: 041

REACTIONS (2)
  - Herpes zoster [Unknown]
  - Malaise [Unknown]

NARRATIVE: CASE EVENT DATE: 2019
